FAERS Safety Report 12467541 (Version 1)
Quarter: 2016Q2

REPORT INFORMATION
  Report Type: Report from Study
  Country: GB (occurrence: GB)
  Receive Date: 20160615
  Receipt Date: 20160615
  Transmission Date: 20160815
  Serious: Yes (Other)
  Sender: FDA-Public Use
  Company Number: GB-ROCHE-1704699

PATIENT
  Age: 79 Year
  Sex: Male

DRUGS (3)
  1. ESBRIET [Suspect]
     Active Substance: PIRFENIDONE
     Indication: IDIOPATHIC PULMONARY FIBROSIS
     Route: 048
     Dates: start: 20140306
  2. ESBRIET [Suspect]
     Active Substance: PIRFENIDONE
     Route: 048
  3. ESBRIET [Suspect]
     Active Substance: PIRFENIDONE
     Dosage: 801 MG ONCE DAILY (3 CAPSULES IN THE MRONING) AND 534 MG TWICE (AT LUNCH TIME AND TEATIME)
     Route: 048

REACTIONS (12)
  - Decreased appetite [Unknown]
  - Fatigue [Unknown]
  - Sputum increased [Unknown]
  - Eating disorder [Unknown]
  - Drug ineffective [Unknown]
  - Dyspnoea [Unknown]
  - Dysgeusia [Unknown]
  - Ill-defined disorder [Unknown]
  - Nausea [Not Recovered/Not Resolved]
  - Exercise tolerance decreased [Not Recovered/Not Resolved]
  - Dyspnoea exertional [Unknown]
  - Mastication disorder [Unknown]
